FAERS Safety Report 9122532 (Version 1)
Quarter: 2013Q1

REPORT INFORMATION
  Report Type: Spontaneous
  Country: HK (occurrence: HK)
  Receive Date: 20130227
  Receipt Date: 20130227
  Transmission Date: 20140127
  Serious: Yes (Hospitalization)
  Sender: FDA-Public Use
  Company Number: HK-COVIDIEN/TYCO HEALTHCARE/MALLINCKRODT-T201300929

PATIENT
  Age: 59 Year
  Sex: Male

DRUGS (1)
  1. OPTIRAY [Suspect]
     Indication: PRODUCT USED FOR UNKNOWN INDICATION
     Dosage: 80 ML, SINGLE
     Route: 042
     Dates: start: 20130216, end: 20130216

REACTIONS (1)
  - Rash generalised [Unknown]
